FAERS Safety Report 8084001-0 (Version None)
Quarter: 2012Q1

REPORT INFORMATION
  Report Type: 
  Country: None (occurrence: None)
  Receive Date: 20120128
  Receipt Date: 20110119
  Transmission Date: 20120608
  Serious: No
  Sender: FDA-Public Use
  Company Number: US-ABBOTT-11P-163-0699280-00

PATIENT
  Sex: Male

DRUGS (6)
  1. HUMIRA [Suspect]
     Indication: PSORIASIS
     Route: 058
     Dates: start: 20101223
  2. MECLIZINE [Concomitant]
     Indication: DIZZINESS
  3. ASPIRIN [Concomitant]
     Indication: CARDIAC DISORDER
  4. ASPIRIN [Concomitant]
     Indication: ANTICOAGULANT THERAPY
  5. METOPROLOL TARTRATE [Concomitant]
     Indication: HYPERTENSION
  6. PRIVISTINE [Concomitant]
     Indication: BLOOD CHOLESTEROL INCREASED

REACTIONS (2)
  - DRY MOUTH [None]
  - NAUSEA [None]
